FAERS Safety Report 5153348-X (Version None)
Quarter: 2006Q4

REPORT INFORMATION
  Report Type: 
  Country: None (occurrence: None)
  Receive Date: 20061117
  Receipt Date: 20061109
  Transmission Date: 20070319
  Serious: Yes (Other)
  Sender: FDA-Public Use
  Company Number: ZA-JNJFOC-20061103197

PATIENT
  Age: 73 Year
  Sex: Male

DRUGS (1)
  1. KETOCONAZOLE [Suspect]
     Indication: DRUG USE FOR UNKNOWN INDICATION

REACTIONS (5)
  - ADRENAL INSUFFICIENCY [None]
  - CARDIAC FAILURE [None]
  - CONFUSIONAL STATE [None]
  - HYPONATRAEMIA [None]
  - NAUSEA [None]
